FAERS Safety Report 4733151-2 (Version None)
Quarter: 2005Q3

REPORT INFORMATION
  Report Type: 
  Country: None (occurrence: None)
  Receive Date: 20050729
  Receipt Date: 20050715
  Transmission Date: 20060218
  Serious: No
  Sender: FDA-Public Use
  Company Number: 11853

PATIENT
  Sex: Male

DRUGS (14)
  1. AMIODARONE [Suspect]
     Indication: ATRIAL FIBRILLATION
     Dosage: 1.2G IV
     Route: 042
     Dates: start: 20050616, end: 20050623
  2. CIPROFLOXACIN HCL [Suspect]
     Indication: KLEBSIELLA INFECTION
     Dosage: 500 MG  BID, PO
     Route: 048
     Dates: start: 20050619, end: 20050623
  3. HYDROXYZINE [Suspect]
     Dosage: 50  MG NOCTE
  4. INSULIN HUMAN [Suspect]
  5. RAMIPRIL [Concomitant]
  6. METOPROLOL [Concomitant]
  7. SIMVASTATIN [Concomitant]
  8. ISOSORBIDE MONONITRATE [Concomitant]
  9. CLOPIDOGREL BISULFATE [Concomitant]
  10. ASPIRIN [Concomitant]
  11. ENOXAPARIN SODIUM [Concomitant]
  12. LANSOPRAZOLE [Concomitant]
  13. ALBUTEROL SULFATE HFA [Concomitant]
  14. DROTRECOGIN ALFA [Concomitant]

REACTIONS (2)
  - BLOOD AMYLASE INCREASED [None]
  - CHOLELITHIASIS [None]
